FAERS Safety Report 4802728-8 (Version None)
Quarter: 2005Q4

REPORT INFORMATION
  Report Type: 
  Country: None (occurrence: None)
  Receive Date: 20051014
  Receipt Date: 20041026
  Transmission Date: 20060501
  Serious: Yes (Life-Threatening)
  Sender: FDA-Public Use
  Company Number: 04P-163-0278873-00

PATIENT
  Age: 37 Year
  Sex: Male

DRUGS (5)
  1. KALETRA [Suspect]
     Dosage: 6 CAPSULE, 1 IN 1 D, ORAL
     Route: 048
     Dates: start: 20040527, end: 20040927
  2. STAVUDINE [Suspect]
     Dosage: 100 MG, 1 IN 1 D, ORAL
     Route: 048
     Dates: start: 20040527, end: 20040927
  3. EMTRICITABINE [Suspect]
     Dosage: 200 MG, 1 IN 1 D, ORAL
     Route: 048
     Dates: start: 20040527, end: 20040927
  4. RANITIDINE HYDROCHLORIDE [Concomitant]
  5. MULTI-VITAMINS [Concomitant]

REACTIONS (3)
  - ALANINE AMINOTRANSFERASE INCREASED [None]
  - ASPARTATE AMINOTRANSFERASE INCREASED [None]
  - GAMMA-GLUTAMYLTRANSFERASE INCREASED [None]
